FAERS Safety Report 7617040-1 (Version None)
Quarter: 2011Q3

REPORT INFORMATION
  Report Type: 
  Country: None (occurrence: None)
  Receive Date: 20110718
  Receipt Date: 20091018
  Transmission Date: 20111222
  Serious: Yes (Other)
  Sender: FDA-Public Use
  Company Number: US-BAYER-200936798NA

PATIENT
  Age: 51 Year
  Sex: Male
  Weight: 115.37 kg

DRUGS (19)
  1. TRASYLOL [Suspect]
     Dosage: 50 ML/HR, INFUSION DOSE
     Route: 042
     Dates: start: 20070709, end: 20070709
  2. ACETYLSALICYLIC ACID SRT [Concomitant]
     Dosage: 81 MG, LONG TERM USE
     Route: 048
  3. HEPARIN [Concomitant]
     Dosage: 10000 U, UNK
     Route: 042
     Dates: start: 20070709
  4. LIPITOR [Concomitant]
     Dosage: 20 MG, LONG TERM USE
     Route: 048
  5. FENTANYL-100 [Concomitant]
     Dosage: 30 ML, UNK
     Route: 042
     Dates: start: 20070709
  6. GLIPIZIDE [Concomitant]
     Dosage: 5 MG, LONGE TERM USE
     Route: 048
  7. HYDROCHLOROTHIAZIDE [Concomitant]
     Dosage: 25 MG, LONG TERM USE
     Route: 048
  8. BUPROPION HYDROCHLORIDE [Concomitant]
     Dosage: 200 MG, LONG TERM USE
     Route: 048
  9. HEPARIN [Concomitant]
     Dosage: 41000 U
     Route: 042
     Dates: start: 20070709
  10. PANCURONIUM [Concomitant]
     Dosage: 10 MG, UNK
     Route: 042
     Dates: start: 20070709
  11. TRASYLOL [Suspect]
     Indication: PRODUCT USED FOR UNKNOWN INDICATION
     Dosage: 1 ML, TEST DOSE
     Route: 042
     Dates: start: 20070709, end: 20070709
  12. AVANDIA [Concomitant]
     Dosage: 8 MG, LONG TERM USE
     Route: 048
  13. LISINOPRIL [Concomitant]
     Dosage: 20 MG, LONG TERM USE
     Route: 048
  14. LORAZEPAM [Concomitant]
     Dosage: 0.5 MG, LONG TERM USE
     Route: 048
  15. INSULIN [Concomitant]
     Dosage: 10 U, UNK
     Route: 042
     Dates: start: 20070709
  16. MUCOMYST [Concomitant]
     Dosage: 600 MG, UNK
     Dates: start: 20070706
  17. OPTIRAY 350 [Concomitant]
     Dosage: 375 ML, UNK
     Dates: start: 20070706
  18. TRASYLOL [Suspect]
     Indication: AORTIC VALVE REPAIR
     Dosage: 200 ML, LOADING DOSE
     Route: 042
     Dates: start: 20070709, end: 20070709
  19. MIDAZOLAM HCL [Concomitant]
     Dosage: 10 MG, UNK
     Route: 042
     Dates: start: 20070709

REACTIONS (12)
  - INJURY [None]
  - DIABETES MELLITUS [None]
  - PAIN [None]
  - RENAL FAILURE [None]
  - EMOTIONAL DISTRESS [None]
  - DEPRESSION [None]
  - ANXIETY [None]
  - UNEVALUABLE EVENT [None]
  - FEAR [None]
  - INSOMNIA [None]
  - RENAL INJURY [None]
  - STRESS [None]
